FAERS Safety Report 6667499-1 (Version None)
Quarter: 2010Q2

REPORT INFORMATION
  Report Type: 
  Country: None (occurrence: None)
  Receive Date: 20100401
  Receipt Date: 20100316
  Transmission Date: 20101027
  Serious: Yes (Hospitalization, Other)
  Sender: FDA-Public Use
  Company Number: JPI-P-010000

PATIENT
  Age: 69 Year
  Sex: Male
  Weight: 113.3993 kg

DRUGS (8)
  1. XYREM [Suspect]
     Indication: NARCOLEPSY
     Dosage: 5 GM (2.5 MG, 2 IN 1 D) , ORAL
     Route: 048
     Dates: start: 20100309, end: 20100310
  2. METOPROLOL SUCCINATE [Concomitant]
  3. DICLOFENAC POTASSIUM [Concomitant]
  4. CLONIDINE [Concomitant]
  5. AMLODIPINE BESYLATE AND BENZAEPRIL HYDROCHLORIDE [Concomitant]
  6. ALLOPURINOL [Concomitant]
  7. SERTRALINE HYDROCHLORIDE [Concomitant]
  8. RABEPRAZOLE SODIUM [Concomitant]

REACTIONS (1)
  - TRANSIENT ISCHAEMIC ATTACK [None]
